FAERS Safety Report 19877729 (Version 1)
Quarter: 2021Q3

REPORT INFORMATION
  Report Type: Spontaneous
  Country: FR (occurrence: FR)
  Receive Date: 20210923
  Receipt Date: 20210923
  Transmission Date: 20211014
  Serious: Yes (Hospitalization)
  Sender: FDA-Public Use
  Company Number: NVSC2021FR215081

PATIENT
  Age: 44 Year
  Sex: Male

DRUGS (1)
  1. RIFAMPICIN [Suspect]
     Active Substance: RIFAMPIN
     Indication: TUBERCULOSIS LIVER
     Dosage: UNK (NON PR?CIS?)
     Route: 048
     Dates: start: 202101, end: 20210414

REACTIONS (1)
  - Eosinophilic colitis [Recovered/Resolved]

NARRATIVE: CASE EVENT DATE: 202101
